FAERS Safety Report 8460442-4 (Version None)
Quarter: 2012Q2

REPORT INFORMATION
  Report Type: 
  Country: None (occurrence: None)
  Receive Date: 20120622
  Receipt Date: 20120607
  Transmission Date: 20120825
  Serious: Yes (Life-Threatening, Other)
  Sender: FDA-Public Use
  Company Number: CHPA2012US012594

PATIENT
  Age: 87 Year
  Sex: Male

DRUGS (3)
  1. MAGNESIUM HYDROXIDE TAB [Suspect]
     Indication: ABDOMINAL DISTENSION
     Dosage: 6 TSP, 1-2 TIMES A DAY ON AND OFF
     Route: 048
  2. CALCIUM CARBONATE [Suspect]
  3. BISMUTH SUBSALICYLATE [Suspect]

REACTIONS (4)
  - ABDOMINAL PAIN UPPER [None]
  - FEELING ABNORMAL [None]
  - ABDOMINAL DISCOMFORT [None]
  - DIARRHOEA [None]
